FAERS Safety Report 4436909-2 (Version None)
Quarter: 2004Q3

REPORT INFORMATION
  Report Type: 
  Country: None (occurrence: None)
  Receive Date: 20040726
  Receipt Date: 20040510
  Transmission Date: 20050211
  Serious: No
  Sender: FDA-Public Use
  Company Number: USA040362747

PATIENT
  Age: 68 Year
  Sex: Female
  Weight: 107 kg

DRUGS (9)
  1. HUMALOG [Suspect]
     Indication: DIABETES MELLITUS
     Dosage: 25 U/DAY
     Dates: start: 20020301
  2. HUMULIN N [Suspect]
     Indication: DIABETES MELLITUS
     Dosage: 61 U/DAY
     Dates: start: 19990101
  3. EVISTA [Suspect]
     Indication: HORMONE REPLACEMENT THERAPY
     Dates: start: 20030711
  4. FORTEO [Suspect]
     Indication: OSTEOPOROSIS
     Dosage: 20 UG/1 DAY
     Dates: start: 20040328
  5. PRAVACHOL [Concomitant]
  6. DARVON [Concomitant]
  7. DETROL [Concomitant]
  8. DIOVAN [Concomitant]
  9. RELIV(PARACETAMOL) [Concomitant]

REACTIONS (6)
  - BLOOD GLUCOSE INCREASED [None]
  - DEPRESSED MOOD [None]
  - FALL [None]
  - GLYCOSYLATED HAEMOGLOBIN INCREASED [None]
  - OSTEOPENIA [None]
  - OSTEOPOROSIS [None]
